FAERS Safety Report 15023706 (Version 1)
Quarter: 2018Q2

REPORT INFORMATION
  Report Type: Spontaneous
  Country: DE (occurrence: DE)
  Receive Date: 20180618
  Receipt Date: 20180618
  Transmission Date: 20180711
  Serious: Yes (Hospitalization)
  Sender: FDA-Public Use
  Company Number: DE-TEVA-2018-DE-908359

PATIENT
  Age: 83 Year
  Sex: Female

DRUGS (12)
  1. COLECALCIFEROL [Concomitant]
     Active Substance: CHOLECALCIFEROL
     Dosage: NK MG, 1-0-0-0
     Route: 065
  2. AMLODIPIN [Concomitant]
     Active Substance: AMLODIPINE BESYLATE
     Dosage: 2.5 MILLIGRAM DAILY;
     Route: 065
  3. CALCIUM [Concomitant]
     Active Substance: CALCIUM
     Dosage: NK MG, 1-0-0-0, EFFERVESCENT TABLETS
     Route: 065
  4. DICLOFENAC [Suspect]
     Active Substance: DICLOFENAC
     Dosage: NK MG, NK
     Route: 065
  5. PANTOPRAZOL [Concomitant]
     Active Substance: PANTOPRAZOLE SODIUM
     Dosage: 80 MILLIGRAM DAILY;
     Route: 065
  6. TORASEMID [Concomitant]
     Active Substance: TORSEMIDE
     Dosage: 5 MILLIGRAM DAILY;
     Route: 065
  7. SPIRONOLACTON [Concomitant]
     Active Substance: SPIRONOLACTONE
     Dosage: 25 MILLIGRAM DAILY;
     Route: 065
  8. EISEN(II) [Concomitant]
     Dosage: NK MG, NEEDS
     Route: 065
  9. DELIX [Concomitant]
     Active Substance: RAMIPRIL
     Dosage: 10 MILLIGRAM DAILY;
     Route: 065
  10. METOPROLOL. [Concomitant]
     Active Substance: METOPROLOL
     Dosage: 47.5 MILLIGRAM DAILY;
     Route: 065
  11. METAMIZOL [Concomitant]
     Active Substance: METAMIZOLE SODIUM
     Dosage: 1000 MILLIGRAM DAILY;
     Route: 065
  12. TRAMADOL. [Concomitant]
     Active Substance: TRAMADOL
     Dosage: 200 MILLIGRAM DAILY;
     Route: 065

REACTIONS (4)
  - Anaemia [Unknown]
  - Haematochezia [Unknown]
  - Condition aggravated [Unknown]
  - General physical health deterioration [Unknown]
